FAERS Safety Report 24604345 (Version 3)
Quarter: 2024Q4

REPORT INFORMATION
  Report Type: Spontaneous
  Country: US (occurrence: US)
  Receive Date: 20241111
  Receipt Date: 20241209
  Transmission Date: 20250115
  Serious: Yes (Other)
  Sender: PFIZER
  Company Number: US-PFIZER INC-202400295984

PATIENT
  Age: 77 Year
  Sex: Female
  Weight: 71.67 kg

DRUGS (6)
  1. IBRANCE [Suspect]
     Active Substance: PALBOCICLIB
     Indication: Breast cancer metastatic
     Dosage: (125 MG TOTAL) DAILY (WITH BREAKFAST). TAKE FOR 3 WEEKS FOLLOWED BY ONE WEEK BREAK
     Route: 048
     Dates: start: 20201001
  2. IBRANCE [Suspect]
     Active Substance: PALBOCICLIB
     Dosage: ONE TABLET DAILY FOR 3 WEEKS AND OFF FOR 1 WEEK
     Route: 048
     Dates: start: 2021
  3. IBRANCE [Suspect]
     Active Substance: PALBOCICLIB
     Dosage: (125 MG TOTAL) DAILY (WITH BREAKFAST). TAKE FOR 3 WEEKS FOLLOWED BY ONE WEEK BREAK
     Route: 048
     Dates: start: 20231204, end: 20241107
  4. IBRANCE [Suspect]
     Active Substance: PALBOCICLIB
     Dosage: (125 MG TOTAL) DAILY (WITH BREAKFAST). TAKE FOR 3 WEEKS FOLLOWED BY ONE WEEK BREAK
     Route: 048
  5. LETROZOLE [Concomitant]
     Active Substance: LETROZOLE
     Indication: Breast cancer metastatic
     Dosage: UNK
     Dates: start: 20201001
  6. FULVESTRANT [Concomitant]
     Active Substance: FULVESTRANT
     Indication: Breast cancer metastatic
     Dosage: UNK
     Dates: start: 20230517

REACTIONS (15)
  - White blood cell count decreased [Unknown]
  - Neoplasm progression [Unknown]
  - Red blood cell count decreased [Unknown]
  - Haematocrit decreased [Unknown]
  - Mean cell volume increased [Unknown]
  - Mean cell haemoglobin increased [Unknown]
  - Mean cell haemoglobin concentration increased [Unknown]
  - Red cell distribution width increased [Unknown]
  - Platelet count decreased [Unknown]
  - Monocyte count increased [Unknown]
  - Neutrophil count decreased [Unknown]
  - Lymphocyte count decreased [Unknown]
  - Blood urea nitrogen/creatinine ratio increased [Unknown]
  - Alanine aminotransferase decreased [Unknown]
  - Protein total decreased [Unknown]

NARRATIVE: CASE EVENT DATE: 20240401
